FAERS Safety Report 16815088 (Version 1)
Quarter: 2019Q3

REPORT INFORMATION
  Report Type: Spontaneous
  Country: US (occurrence: US)
  Receive Date: 20190917
  Receipt Date: 20190917
  Transmission Date: 20191005
  Serious: No
  Sender: FDA-Public Use
  Company Number: US-ALLERGAN-1929138US

PATIENT
  Age: 69 Year
  Sex: Male

DRUGS (5)
  1. UNSPECIFIED MEDICATION FOR CORONARY ARTERY DISEASE [Concomitant]
     Indication: CORONARY ARTERY DISEASE
     Dosage: UNK
  2. UNSPECIFIED MEDICATION FOR DIABETES [Concomitant]
     Indication: DIABETES MELLITUS
     Dosage: UNK
  3. LINZESS [Suspect]
     Active Substance: LINACLOTIDE
     Indication: CROHN^S DISEASE
     Dosage: 145 ?G, QAM ONE DOSE
     Route: 048
     Dates: start: 20190712, end: 20190712
  4. LINZESS [Suspect]
     Active Substance: LINACLOTIDE
     Indication: IRRITABLE BOWEL SYNDROME
  5. LINZESS [Suspect]
     Active Substance: LINACLOTIDE
     Indication: CONSTIPATION

REACTIONS (2)
  - Diarrhoea [Not Recovered/Not Resolved]
  - Off label use [Unknown]

NARRATIVE: CASE EVENT DATE: 20190712
